FAERS Safety Report 9271070 (Version 1)
Quarter: 2013Q2

REPORT INFORMATION
  Report Type: Spontaneous
  Country: CH (occurrence: CH)
  Receive Date: 20130506
  Receipt Date: 20130506
  Transmission Date: 20140414
  Serious: Yes (Hospitalization)
  Sender: FDA-Public Use
  Company Number: CH-AMGEN-CHESP2013029423

PATIENT
  Age: 71 Year
  Sex: Female

DRUGS (8)
  1. PROLIA [Suspect]
     Indication: OSTEOPOROSIS
     Dosage: 60 MG, UNK
     Route: 058
     Dates: start: 20121205, end: 20121205
  2. AGRIPPAL [Suspect]
     Indication: INFLUENZA
     Dosage: UNK
     Route: 058
     Dates: start: 20121205, end: 20121205
  3. ZANIDIP [Concomitant]
     Dosage: 5 MG, QD
  4. CRESTOR [Concomitant]
     Dosage: 5 MG, QD
     Route: 048
  5. CALCIMAGON D3 [Concomitant]
     Dosage: 500 MG, QD
  6. ATENOLOL [Concomitant]
     Dosage: 100 MG, QD
  7. PANTOZOL                           /01263204/ [Concomitant]
     Dosage: 40 MG, UNK
     Route: 048
  8. DORMICUM                           /00036201/ [Concomitant]
     Dosage: 7.5 MG, QD

REACTIONS (4)
  - Pyrexia [Recovered/Resolved]
  - Alanine aminotransferase increased [None]
  - Gamma-glutamyltransferase increased [None]
  - Benign breast neoplasm [None]
